FAERS Safety Report 6839026-7 (Version None)
Quarter: 2010Q3

REPORT INFORMATION
  Report Type: 
  Country: None (occurrence: None)
  Receive Date: 20100714
  Receipt Date: 20100702
  Transmission Date: 20110219
  Serious: Yes (Hospitalization)
  Sender: FDA-Public Use
  Company Number: FR-BRISTOL-MYERS SQUIBB COMPANY-15186075

PATIENT
  Age: 84 Year
  Sex: Male

DRUGS (8)
  1. GLUCOPHAGE [Suspect]
     Indication: TYPE 2 DIABETES MELLITUS
     Dosage: 850 MG
     Route: 048
     Dates: end: 20100527
  2. AMIODARONE HCL [Concomitant]
  3. ATENOLOL [Concomitant]
  4. LASIX [Concomitant]
  5. PREVISCAN [Concomitant]
  6. KARDEGIC [Concomitant]
  7. DIFFU-K [Concomitant]
  8. OMEPRAZOLE [Concomitant]

REACTIONS (4)
  - HYPERLACTACIDAEMIA [None]
  - HYPOTENSION [None]
  - MYOCARDIAL ISCHAEMIA [None]
  - RENAL IMPAIRMENT [None]
